FAERS Safety Report 21264171 (Version 2)
Quarter: 2022Q3

REPORT INFORMATION
  Report Type: Spontaneous
  Country: JP (occurrence: JP)
  Receive Date: 20220829
  Receipt Date: 20220925
  Transmission Date: 20221026
  Serious: Yes (Hospitalization)
  Sender: FDA-Public Use
  Company Number: JP-JNJFOC-20220854961

PATIENT
  Age: 5 Decade
  Sex: Male

DRUGS (3)
  1. STELARA [Suspect]
     Active Substance: USTEKINUMAB
     Indication: Colitis ulcerative
     Dosage: DOSE UNKNOWN
     Route: 041
     Dates: start: 20220712
  2. STELARA [Suspect]
     Active Substance: USTEKINUMAB
     Dosage: DOSE UNKNOWN
     Route: 058
     Dates: start: 2022
  3. PREDNISOLONE [Concomitant]
     Active Substance: PREDNISOLONE
     Indication: Colitis ulcerative
     Dosage: DOSE UNKNOWN
     Route: 048

REACTIONS (1)
  - Intestinal perforation [Recovering/Resolving]

NARRATIVE: CASE EVENT DATE: 20220816
